FAERS Safety Report 21422286 (Version 1)
Quarter: 2022Q4

REPORT INFORMATION
  Report Type: Other
  Country: CN (occurrence: CN)
  Receive Date: 20221007
  Receipt Date: 20221007
  Transmission Date: 20230113
  Serious: Yes (Other)
  Sender: FDA-Public Use
  Company Number: CN-GE HEALTHCARE-2022CSU007110

PATIENT
  Age: 54 Year
  Sex: Male
  Weight: 72.5 kg

DRUGS (2)
  1. OMNIPAQUE [Suspect]
     Active Substance: IOHEXOL
     Indication: Angiogram
     Dosage: 4 ML, INTO THE CORONARY ARTERY THROUGH 5F IMAGING CATHETER VIA RADIAL ARTERY PUNCTURE, ONCE
     Route: 013
     Dates: start: 20220920, end: 20220920
  2. OMNIPAQUE [Suspect]
     Active Substance: IOHEXOL
     Indication: Coronary artery disease

REACTIONS (1)
  - Laryngeal pain [Recovering/Resolving]

NARRATIVE: CASE EVENT DATE: 20220920
